FAERS Safety Report 4506808-6 (Version None)
Quarter: 2004Q4

REPORT INFORMATION
  Report Type: 
  Country: None (occurrence: None)
  Receive Date: 20041122
  Receipt Date: 20040604
  Transmission Date: 20050328
  Serious: Yes (Other)
  Sender: FDA-Public Use
  Company Number: GB-GLAXOSMITHKLINE-B0334988A

PATIENT
  Age: 15 Year
  Sex: Male
  Weight: 55 kg

DRUGS (3)
  1. LAMIVUDINE [Suspect]
     Indication: HEPATITIS B
     Route: 048
     Dates: start: 20030522, end: 20040617
  2. CYCLOSPORINE [Concomitant]
     Dosage: 100MG TWICE PER DAY
  3. ENALAPRIL [Concomitant]
     Dosage: 2.5MG TWICE PER DAY

REACTIONS (5)
  - CARDIOMYOPATHY [None]
  - CHEST PAIN [None]
  - DYSPNOEA [None]
  - EXERCISE TOLERANCE DECREASED [None]
  - FATIGUE [None]
